FAERS Safety Report 4693734-5 (Version None)
Quarter: 2005Q2

REPORT INFORMATION
  Report Type: 
  Country: None (occurrence: None)
  Receive Date: 20050615
  Receipt Date: 20050602
  Transmission Date: 20051028
  Serious: Yes (Death)
  Sender: FDA-Public Use
  Company Number: HQWYE772018MAY05

PATIENT
  Sex: Male

DRUGS (19)
  1. PANTOPRAZOLE SODIUM [Suspect]
     Dosage: 20 MG 1X PER DAY
  2. ALLOPURINOL [Suspect]
     Dosage: 200 MG  1X PER 1 DAY
  3. BECLOMETHASONE DIPROPIONATE [Suspect]
  4. DIGOXIN [Suspect]
     Dosage: 1 TIME (S) PER DAY 250 MG^
  5. FUROSEMIDE [Suspect]
     Dosage: 80 MG 1X PER 1 DAY
  6. ACETAMINOPHEN [Concomitant]
     Dosage: ORAL
     Route: 048
  7. PERINDOPRIL (PERINDOPRIL, ) [Concomitant]
     Dosage: 4 MG 1X PER 1 DAY
  8. SIMVASTATIN [Concomitant]
     Dosage: 40 MG 1X PER 1 DAY
  9. SPIRIVA [Suspect]
     Dosage: 4 MG 1X PER 1 DAY, ORAL
     Route: 048
  10. SPIRIVA [Suspect]
     Dosage: DAILY, INHALATION
     Route: 055
  11. SPIRIVA [Suspect]
     Dosage: 200 MG 1X PER 1 DAY, ORAL
     Route: 048
  12. SPIRIVA [Suspect]
     Dosage: 250 MG 1X PER 1 DAY,ORAL
     Route: 048
  13. SPIRIVA [Suspect]
     Dosage: 80 MG 1X PER 1 DAY, ORAL
     Route: 048
  14. SPIRIVA [Suspect]
     Dosage: 20 MG 1X PER 1 DAY, ORAL
     Route: 048
  15. SPIRIVA [Suspect]
     Dosage: 40 MG 1X PER 1 DAY, ORAL
     Route: 048
  16. SPIRIVA [Suspect]
     Dosage: DAILY
  17. SPIRIVA [Suspect]
     Dosage: DAILY, INHALATION
     Route: 055
  18. VENTOLIN [Suspect]
  19. WARFARIN SODIUM [Suspect]
     Dosage: ORAL
     Route: 048

REACTIONS (1)
  - AORTIC DISSECTION [None]
